FAERS Safety Report 25091927 (Version 1)
Quarter: 2025Q1

REPORT INFORMATION
  Report Type: Spontaneous
  Country: AU (occurrence: AU)
  Receive Date: 20250318
  Receipt Date: 20250318
  Transmission Date: 20250409
  Serious: Yes (Other)
  Sender: BRISTOL-MYERS SQUIBB COMPANY
  Company Number: AU-BRISTOL-MYERS SQUIBB COMPANY-2025-039058

PATIENT
  Age: 75 Year
  Sex: Female
  Weight: 42 kg

DRUGS (17)
  1. ELIQUIS [Suspect]
     Active Substance: APIXABAN
     Indication: Pulmonary thrombosis
     Route: 048
     Dates: start: 202410
  2. ELIQUIS [Suspect]
     Active Substance: APIXABAN
     Route: 048
  3. ELIQUIS [Suspect]
     Active Substance: APIXABAN
     Route: 048
  4. ELIQUIS [Suspect]
     Active Substance: APIXABAN
     Route: 048
  5. ELIQUIS [Suspect]
     Active Substance: APIXABAN
     Route: 048
  6. ELIQUIS [Suspect]
     Active Substance: APIXABAN
     Route: 048
     Dates: start: 20250219
  7. OLEA EUROPAEA LEAF [Concomitant]
     Active Substance: OLEA EUROPAEA LEAF
     Indication: Product used for unknown indication
     Dosage: MORNING AND NIGHT
  8. ALOE VERA JUICE [Concomitant]
     Indication: Product used for unknown indication
  9. NONI JUICE [Concomitant]
     Active Substance: NONI FRUIT JUICE
     Indication: Product used for unknown indication
     Dosage: IN MORNING
  10. LUTEIN [Concomitant]
     Active Substance: LUTEIN
     Indication: Product used for unknown indication
  11. BILBERRY [VACCINIUM MYRTILLUS] [Concomitant]
     Indication: Product used for unknown indication
  12. LIVER CLEANSE [ACTAEA RACEMOSA ROOT;ANGELICA ARCHANGELICA ROOT;BETA VU [Concomitant]
     Indication: Product used for unknown indication
     Dosage: MORNING AND NIGHT
  13. SELENIUM FORTE [Concomitant]
     Indication: Product used for unknown indication
  14. ORGANIC ZINC [Concomitant]
     Indication: Product used for unknown indication
  15. MAGNESIUM GLYCINATE [Concomitant]
     Active Substance: MAGNESIUM GLYCINATE
     Indication: Product used for unknown indication
  16. MINERALS [Concomitant]
     Active Substance: MINERALS
     Indication: Product used for unknown indication
     Dosage: AT NIGHT
  17. ALPHA LIPOIC ACID [Concomitant]
     Active Substance: .ALPHA.-LIPOIC ACID
     Indication: Product used for unknown indication
     Dosage: AT NIGHT

REACTIONS (7)
  - Bronchiectasis [Unknown]
  - Haemoptysis [Recovered/Resolved]
  - Pulmonary thrombosis [Unknown]
  - Dizziness [Unknown]
  - Fall [Unknown]
  - Fatigue [Unknown]
  - Off label use [Unknown]

NARRATIVE: CASE EVENT DATE: 20241201
